FAERS Safety Report 20732601 (Version 1)
Quarter: 2022Q2

REPORT INFORMATION
  Report Type: Spontaneous
  Country: US (occurrence: US)
  Receive Date: 20220420
  Receipt Date: 20220420
  Transmission Date: 20220721
  Serious: No
  Sender: FDA-Public Use
  Company Number: US-Teikoku Pharma USA-TPU2022-00430

PATIENT
  Sex: Female

DRUGS (2)
  1. LIDOCAINE PATCH [Suspect]
     Active Substance: LIDOCAINE
     Indication: Back pain
     Route: 061
  2. LIDOCAINE PATCH [Suspect]
     Active Substance: LIDOCAINE
     Indication: Limb fracture

REACTIONS (6)
  - Fall [Unknown]
  - Wrist fracture [Unknown]
  - Joint injury [Unknown]
  - Meniscus injury [Unknown]
  - Back pain [Unknown]
  - Sciatica [Unknown]
